FAERS Safety Report 9515779 (Version 2)
Quarter: 2014Q1

REPORT INFORMATION
  Report Type: Spontaneous
  Country: US (occurrence: None)
  Receive Date: 20130305
  Receipt Date: 20140306
  Transmission Date: 20141002
  Serious: Yes (Other)
  Sender: FDA-Public Use
  Company Number: 163-21880-12112508

PATIENT
  Age: 84 Year
  Sex: Male

DRUGS (6)
  1. REVLIMID [Suspect]
     Indication: PLASMA CELL MYELOMA
     Dosage: 10 MG, 1 IN 2D
     Route: 048
     Dates: start: 20120617
  2. VELCADE (BORTEZOMIB) [Concomitant]
  3. ZOMETA [Concomitant]
  4. DECADRON [Concomitant]
  5. ASPIRIN [Concomitant]
  6. ARANESP (DARBEPOETIN ALFA) [Concomitant]

REACTIONS (2)
  - Thrombosis [None]
  - Deep vein thrombosis [None]
